FAERS Safety Report 18902216 (Version 1)
Quarter: 2021Q1

REPORT INFORMATION
  Report Type: Spontaneous
  Country: JP (occurrence: JP)
  Receive Date: 20210216
  Receipt Date: 20210216
  Transmission Date: 20210420
  Serious: No
  Sender: FDA-Public Use
  Company Number: JP-ALLERGAN-2106234US

PATIENT
  Age: 6 Decade
  Sex: Male

DRUGS (2)
  1. ASENAPINE MALEATE ? BP [Suspect]
     Active Substance: ASENAPINE MALEATE
     Indication: INSOMNIA
     Dosage: 5 MG, QHS
     Route: 060
  2. ASENAPINE MALEATE ? BP [Suspect]
     Active Substance: ASENAPINE MALEATE
     Indication: BIPOLAR DISORDER

REACTIONS (3)
  - Sedation complication [Recovering/Resolving]
  - Off label use [Unknown]
  - Swollen tongue [Recovering/Resolving]
